FAERS Safety Report 7737022-9 (Version None)
Quarter: 2011Q3

REPORT INFORMATION
  Report Type: 
  Country: None (occurrence: None)
  Receive Date: 20110908
  Receipt Date: 20110826
  Transmission Date: 20111222
  Serious: Yes (Hospitalization, Other)
  Sender: FDA-Public Use
  Company Number: US-ELI_LILLY_AND_COMPANY-US201102002145

PATIENT
  Sex: Female

DRUGS (9)
  1. FORTEO [Suspect]
     Indication: OSTEOPOROSIS
     Dosage: 20 UG, QD
     Route: 065
     Dates: start: 20110131
  2. FORTEO [Suspect]
     Dosage: 20 UG, QD
     Route: 065
  3. FORTEO [Suspect]
     Dosage: 20 UG, QD
     Route: 065
  4. ANTIHYPERTENSIVES [Concomitant]
  5. FORTEO [Suspect]
     Dosage: 20 UG, QD
     Route: 065
     Dates: start: 20110501
  6. FORTEO [Suspect]
     Dosage: 20 UG, QD
     Route: 065
  7. THYROID PREPARATIONS [Concomitant]
  8. FORTEO [Suspect]
     Dosage: 20 UG, QD
     Route: 065
  9. CELEBREX [Concomitant]

REACTIONS (8)
  - DEVICE DISLOCATION [None]
  - BLOOD PRESSURE INCREASED [None]
  - DYSGEUSIA [None]
  - DYSPNOEA [None]
  - PAIN IN EXTREMITY [None]
  - LUNG DISORDER [None]
  - HYPOTENSION [None]
  - HEART RATE INCREASED [None]
